FAERS Safety Report 9323729 (Version 2)
Quarter: 2013Q2

REPORT INFORMATION
  Report Type: Report from Study
  Country: KR (occurrence: KR)
  Receive Date: 20130603
  Receipt Date: 20130624
  Transmission Date: 20140414
  Serious: Yes (Hospitalization, Other)
  Sender: FDA-Public Use
  Company Number: KR-ELI_LILLY_AND_COMPANY-KR201305007587

PATIENT
  Age: 73 Year
  Sex: Male

DRUGS (1)
  1. LISPRO 50LIS50NPL KWIKPEN / MIRIOPEN [Suspect]
     Indication: TYPE 2 DIABETES MELLITUS
     Dosage: 20 U, BID
     Route: 058
     Dates: start: 20130330

REACTIONS (3)
  - Chronic obstructive pulmonary disease [Not Recovered/Not Resolved]
  - Blood glucose increased [Not Recovered/Not Resolved]
  - Generalised oedema [None]
